FAERS Safety Report 5937670-2 (Version None)
Quarter: 2008Q4

REPORT INFORMATION
  Report Type: 
  Country: None (occurrence: None)
  Receive Date: 20081031
  Receipt Date: 20080403
  Transmission Date: 20090506
  Serious: No
  Sender: FDA-Public Use
  Company Number: US-BAYER-200811490BCC

PATIENT
  Age: 3 Year
  Sex: Male
  Weight: 14 kg

DRUGS (2)
  1. ALEVE [Suspect]
     Route: 048
     Dates: start: 20080403
  2. MELATONIN [Concomitant]

REACTIONS (1)
  - NO ADVERSE EVENT [None]
